FAERS Safety Report 4408391-2 (Version None)
Quarter: 2004Q3

REPORT INFORMATION
  Report Type: 
  Country: None (occurrence: None)
  Receive Date: 20040722
  Receipt Date: 20040707
  Transmission Date: 20050211
  Serious: Yes (Other)
  Sender: FDA-Public Use
  Company Number: USA-2004-0015885

PATIENT
  Age: 92 Year
  Sex: Female
  Weight: 51.7 kg

DRUGS (1)
  1. OXYCONTIN [Suspect]
     Dosage: ORAL
     Route: 048

REACTIONS (3)
  - COMA [None]
  - LETHARGY [None]
  - MEDICATION ERROR [None]
